FAERS Safety Report 5715046-0 (Version None)
Quarter: 2008Q2

REPORT INFORMATION
  Report Type: 
  Country: None (occurrence: None)
  Receive Date: 20080423
  Receipt Date: 20080414
  Transmission Date: 20081010
  Serious: Yes (Hospitalization)
  Sender: FDA-Public Use
  Company Number: FR-PFIZER INC-2007078466

PATIENT
  Sex: Male

DRUGS (6)
  1. ATORVASTATIN CALCIUM [Suspect]
     Route: 048
     Dates: start: 20070704, end: 20070707
  2. AUGMENTIN '125' [Suspect]
     Route: 042
     Dates: start: 20070706, end: 20070708
  3. POLARAMINE [Suspect]
     Route: 042
     Dates: start: 20070706, end: 20070707
  4. AMLOR [Concomitant]
     Route: 048
  5. ADANCOR [Concomitant]
     Route: 048
     Dates: end: 20070708
  6. DAFALGAN [Concomitant]
     Route: 048
     Dates: start: 20070704, end: 20070706

REACTIONS (1)
  - TOXIC EPIDERMAL NECROLYSIS [None]
